FAERS Safety Report 9099183 (Version 1)
Quarter: 2013Q1

REPORT INFORMATION
  Report Type: Spontaneous
  Country: US (occurrence: US)
  Receive Date: 20130214
  Receipt Date: 20130214
  Transmission Date: 20140127
  Serious: No
  Sender: FDA-Public Use
  Company Number: US-COVIDIEN/TYCO HEALTHCARE/MALLINCKRODT-T201300753

PATIENT
  Age: 64 Year
  Sex: Female
  Weight: 72.56 kg

DRUGS (3)
  1. FENTANYL TRANSDERMAL SYSTEM [Suspect]
     Indication: PAIN
     Dosage: 100 MCG/HR, EVERY 48 HOURS
     Route: 062
     Dates: start: 201108
  2. FENTANYL TRANSDERMAL SYSTEM [Suspect]
     Dosage: 50 MCG/HR EVERY 2 DAYS
     Route: 062
     Dates: start: 201108
  3. OXYCODONE [Concomitant]
     Indication: PAIN
     Dosage: 15 MG, 5 PER DAY

REACTIONS (1)
  - Nail discolouration [Recovered/Resolved]
